FAERS Safety Report 11797673 (Version 1)
Quarter: 2015Q4

REPORT INFORMATION
  Report Type: Spontaneous
  Country: US (occurrence: US)
  Receive Date: 20151203
  Receipt Date: 20151203
  Transmission Date: 20160305
  Serious: No
  Sender: FDA-Public Use
  Company Number: ALCN2015US007306

PATIENT
  Age: 70 Year
  Sex: Female

DRUGS (1)
  1. SYSTANE PF [Suspect]
     Active Substance: POLYETHYLENE GLYCOL 400\PROPYLENE GLYCOL
     Indication: DRY EYE
     Dosage: 2 GTT, QID
     Route: 047
     Dates: start: 20151118, end: 20151119

REACTIONS (4)
  - Vision blurred [Recovered/Resolved]
  - Nausea [Recovered/Resolved]
  - Dizziness [Recovered/Resolved]
  - Blepharitis [Recovered/Resolved]

NARRATIVE: CASE EVENT DATE: 20151118
